FAERS Safety Report 9581252 (Version 1)
Quarter: 2013Q4

REPORT INFORMATION
  Report Type: Report from Study
  Country: US (occurrence: US)
  Receive Date: 20131002
  Receipt Date: 20131002
  Transmission Date: 20140711
  Serious: Yes (Death)
  Sender: FDA-Public Use
  Company Number: US-PFIZER INC-2013275298

PATIENT
  Age: 20 Year
  Sex: Female

DRUGS (5)
  1. DEXTROMETHORPHAN HBR [Suspect]
     Dosage: UNK
  2. CITALOPRAM [Suspect]
     Dosage: UNK
  3. DIPHENHYDRAMINE [Suspect]
     Dosage: UNK
  4. HYDROCODONE [Suspect]
     Dosage: UNK
  5. HEROIN [Suspect]
     Dosage: UNK

REACTIONS (4)
  - Overdose [Fatal]
  - Drug abuser [Fatal]
  - Oedema [Fatal]
  - Bronchopneumonia [Fatal]
